FAERS Safety Report 5209060-1 (Version None)
Quarter: 2007Q1

REPORT INFORMATION
  Report Type: 
  Country: None (occurrence: None)
  Receive Date: 20070111
  Receipt Date: 20070104
  Transmission Date: 20070707
  Serious: Yes (Hospitalization)
  Sender: FDA-Public Use
  Company Number: 2007AL000068

PATIENT
  Age: 58 Year
  Sex: Male

DRUGS (6)
  1. CITALOPRAM HYDROBROMIDE [Suspect]
     Dosage: 20 MG; QD; PO
     Route: 048
     Dates: start: 20060918
  2. PARACETAMOL/CODEINE [Concomitant]
  3. SIMVASTATIN [Concomitant]
  4. DIPYRIDAMOLE [Concomitant]
  5. ASPIRIN [Concomitant]
  6. THIAMINE [Concomitant]

REACTIONS (2)
  - GASTROINTESTINAL HAEMORRHAGE [None]
  - HAEMATEMESIS [None]
